FAERS Safety Report 17920457 (Version 1)
Quarter: 2020Q2

REPORT INFORMATION
  Report Type: Spontaneous
  Country: US (occurrence: US)
  Receive Date: 20200620
  Receipt Date: 20200620
  Transmission Date: 20200714
  Serious: No
  Sender: FDA-Public Use
  Company Number: US-ALLERQUEST, LLC-2086313

PATIENT
  Sex: Female

DRUGS (1)
  1. PRE-PEN [Suspect]
     Active Substance: BENZYLPENICILLOYL POLYLYSINE
     Indication: ALLERGY TEST
     Route: 023
     Dates: start: 20200302, end: 20200302

REACTIONS (1)
  - Urticaria [Recovered/Resolved with Sequelae]

NARRATIVE: CASE EVENT DATE: 20200302
